FAERS Safety Report 13675799 (Version 3)
Quarter: 2017Q3

REPORT INFORMATION
  Report Type: Report from Study
  Country: US (occurrence: US)
  Receive Date: 20170621
  Receipt Date: 20170705
  Transmission Date: 20171127
  Serious: Yes (Other)
  Sender: FDA-Public Use
  Company Number: US-AMGEN-USASL2017093369

PATIENT
  Age: 81 Year
  Sex: Female

DRUGS (2)
  1. ENBREL [Suspect]
     Active Substance: ETANERCEPT
     Dosage: 50 MG, QWK
     Route: 065
     Dates: start: 2017
  2. ENBREL [Suspect]
     Active Substance: ETANERCEPT
     Indication: PSORIASIS
     Dosage: 50 MG, 2 TIMES/WK
     Route: 065
     Dates: start: 201705

REACTIONS (15)
  - Blood pressure increased [Unknown]
  - Dizziness [Not Recovered/Not Resolved]
  - Injection site pain [Unknown]
  - Hypoaesthesia [Unknown]
  - Malaise [Unknown]
  - Injection site erythema [Unknown]
  - Weight increased [Unknown]
  - Atrial fibrillation [Unknown]
  - Pain in extremity [Unknown]
  - Dyspnoea [Not Recovered/Not Resolved]
  - Injection site haemorrhage [Unknown]
  - Chest pain [Unknown]
  - Peripheral swelling [Not Recovered/Not Resolved]
  - Headache [Unknown]
  - Injection site bruising [Unknown]

NARRATIVE: CASE EVENT DATE: 2017
